FAERS Safety Report 8336622-5 (Version None)
Quarter: 2012Q2

REPORT INFORMATION
  Report Type: 
  Country: None (occurrence: None)
  Receive Date: 20120504
  Receipt Date: 20120503
  Transmission Date: 20120825
  Serious: Yes (Life-Threatening, Other)
  Sender: FDA-Public Use
  Company Number: DE-BAYER-2012-042952

PATIENT
  Sex: Male
  Weight: 102 kg

DRUGS (3)
  1. LEVOTHYROXINE SODIUM [Concomitant]
     Indication: HYPERTHYROIDISM
     Dosage: 75 ?G, QD
     Dates: start: 20060101
  2. NEBIDO [Concomitant]
     Indication: HYPOGONADISM MALE
     Dosage: 1000 MG, EVERY 120 DAYS
     Route: 030
  3. LEVITRA [Suspect]
     Indication: ERECTILE DYSFUNCTION
     Dosage: 10 MG, QD
     Route: 048
     Dates: start: 20120424, end: 20120424

REACTIONS (5)
  - TRANSIENT GLOBAL AMNESIA [None]
  - SINUS ARREST [None]
  - BLOOD PRESSURE INCREASED [None]
  - COLD SWEAT [None]
  - SYNCOPE [None]
